FAERS Safety Report 11775072 (Version 2)
Quarter: 2017Q2

REPORT INFORMATION
  Report Type: Report from Study
  Country: US (occurrence: US)
  Receive Date: 20151124
  Receipt Date: 20170607
  Transmission Date: 20170829
  Serious: No
  Sender: FDA-Public Use
  Company Number: US-TAKEDA-2015TUS016628

PATIENT
  Sex: Female
  Weight: 86.17 kg

DRUGS (3)
  1. CHOLESTYRAMINE. [Concomitant]
     Active Substance: CHOLESTYRAMINE
     Dosage: UNK
  2. ZOFRAN [Concomitant]
     Active Substance: ONDANSETRON HYDROCHLORIDE
     Indication: NAUSEA
     Dosage: UNK
     Route: 048
  3. VEDOLIZUMAB [Suspect]
     Active Substance: VEDOLIZUMAB
     Indication: CROHN^S DISEASE
     Dosage: 300 MG, UNK
     Route: 042
     Dates: start: 20151116

REACTIONS (5)
  - Bone pain [Recovering/Resolving]
  - Breast pain [Not Recovered/Not Resolved]
  - Back pain [Recovering/Resolving]
  - Breast discolouration [Not Recovered/Not Resolved]
  - Pain in extremity [Recovering/Resolving]
